FAERS Safety Report 8139000-7 (Version None)
Quarter: 2012Q1

REPORT INFORMATION
  Report Type: 
  Country: None (occurrence: None)
  Receive Date: 20120215
  Receipt Date: 20120206
  Transmission Date: 20120608
  Serious: Yes (Hospitalization)
  Sender: FDA-Public Use
  Company Number: US-EISAI INC-E7389-02045-CLI-US

PATIENT
  Sex: Female
  Weight: 67 kg

DRUGS (2)
  1. EPIRUBICIN HYDROCHLORIDE [Suspect]
     Indication: BREAST CANCER
     Route: 041
     Dates: start: 20111116, end: 20120201
  2. CAPECITABINE [Suspect]
     Indication: BREAST CANCER
     Route: 041
     Dates: start: 20111117

REACTIONS (1)
  - DEEP VEIN THROMBOSIS [None]
